FAERS Safety Report 24761729 (Version 1)
Quarter: 2024Q4

REPORT INFORMATION
  Report Type: Spontaneous
  Country: CN (occurrence: CN)
  Receive Date: 20241220
  Receipt Date: 20241220
  Transmission Date: 20250115
  Serious: Yes (Other)
  Sender: ABBVIE
  Company Number: CN-LUNDBECK-DKLU4003665

PATIENT
  Age: 31 Year
  Sex: Female

DRUGS (2)
  1. ESCITALOPRAM OXALATE [Suspect]
     Active Substance: ESCITALOPRAM OXALATE
     Indication: Depression
     Dosage: 20 MILLIGRAM
     Route: 048
     Dates: start: 20240813, end: 20240820
  2. OLANZAPINE [Suspect]
     Active Substance: OLANZAPINE
     Indication: Drug therapy enhancement
     Dosage: 5 MILLIGRAM
     Route: 048
     Dates: start: 20240813, end: 20240820

REACTIONS (1)
  - Hepatic function abnormal [Unknown]

NARRATIVE: CASE EVENT DATE: 20240820
